FAERS Safety Report 5646060-1 (Version None)
Quarter: 2008Q1

REPORT INFORMATION
  Report Type: 
  Country: None (occurrence: None)
  Receive Date: 20080131
  Receipt Date: 20071213
  Transmission Date: 20080703
  Serious: Yes (Hospitalization)
  Sender: FDA-Public Use
  Company Number: 163-21880-07120765

PATIENT
  Age: 64 Year
  Sex: Male
  Weight: 88.4514 kg

DRUGS (8)
  1. REVLIMID [Suspect]
     Indication: MULTIPLE MYELOMA
     Dosage: 15 MG, 1 IN 1 D, ORAL, 25 MG, 1 IN 1 D
     Route: 048
     Dates: start: 20070403, end: 20070801
  2. REVLIMID [Suspect]
     Indication: MULTIPLE MYELOMA
     Dosage: 15 MG, 1 IN 1 D, ORAL, 25 MG, 1 IN 1 D
     Route: 048
     Dates: start: 20070918
  3. DEXAMETHASONE TAB [Concomitant]
  4. LIPITOR [Concomitant]
  5. ANTIBIOTICS (ANTIBIOTICS) [Concomitant]
  6. LEVAQUIN [Concomitant]
  7. BACTRIM [Concomitant]
  8. PREDNISONE TAB [Concomitant]

REACTIONS (2)
  - DYSPNOEA [None]
  - PYREXIA [None]
